FAERS Safety Report 5480719-4 (Version None)
Quarter: 2007Q4

REPORT INFORMATION
  Report Type: 
  Country: None (occurrence: None)
  Receive Date: 20071009
  Receipt Date: 20071005
  Transmission Date: 20080405
  Serious: Yes (Hospitalization)
  Sender: FDA-Public Use
  Company Number: FR-WYE-G00437907

PATIENT
  Sex: Male
  Weight: 21 kg

DRUGS (2)
  1. ADVIL ENFANTS ET NOURRISSONS [Suspect]
     Indication: ARTHRALGIA
     Route: 048
     Dates: start: 20070902, end: 20070902
  2. ADVIL ENFANTS ET NOURRISSONS [Suspect]
     Indication: PYREXIA

REACTIONS (1)
  - CELLULITIS [None]
